FAERS Safety Report 8609179-9 (Version None)
Quarter: 2012Q3

REPORT INFORMATION
  Report Type: 
  Country: None (occurrence: None)
  Receive Date: 20120821
  Receipt Date: 20120806
  Transmission Date: 20120928
  Serious: Yes (Death, Other)
  Sender: FDA-Public Use
  Company Number: BR-WATSON-2012-14494

PATIENT
  Weight: 1 kg

DRUGS (1)
  1. LOSARTAN POTASSIUM [Suspect]
     Indication: PRODUCT USED FOR UNKNOWN INDICATION
     Dosage: UNK
     Route: 064

REACTIONS (6)
  - FOETAL EXPOSURE DURING PREGNANCY [None]
  - CRANIOFACIAL DYSOSTOSIS [None]
  - PULMONARY HYPOPLASIA [None]
  - EXTREMITY CONTRACTURE [None]
  - PREMATURE DELIVERY [None]
  - OLIGOHYDRAMNIOS [None]
